FAERS Safety Report 7080351-5 (Version None)
Quarter: 2010Q4

REPORT INFORMATION
  Report Type: 
  Country: None (occurrence: None)
  Receive Date: 20101022
  Receipt Date: 20101012
  Transmission Date: 20110411
  Serious: Yes (Hospitalization)
  Sender: FDA-Public Use
  Company Number: 719202

PATIENT
  Age: 93 Year
  Sex: Female
  Weight: 38 kg

DRUGS (15)
  1. PRECEDEX [Suspect]
     Indication: SEDATION
     Dosage: 3-5 ML/HR INTRAVENOUS DRIP ; 4-7 ML/HR INTRAVENOUS DRIP
     Route: 041
     Dates: start: 20091225, end: 20091226
  2. PRECEDEX [Suspect]
     Indication: SEDATION
     Dosage: 3-5 ML/HR INTRAVENOUS DRIP ; 4-7 ML/HR INTRAVENOUS DRIP
     Route: 041
     Dates: start: 20091225, end: 20091226
  3. PRECEDEX [Suspect]
     Indication: SEDATION
     Dosage: 3-5 ML/HR INTRAVENOUS DRIP ; 4-7 ML/HR INTRAVENOUS DRIP
     Route: 041
     Dates: start: 20091229, end: 20100104
  4. FENTANYL [Concomitant]
  5. MIDAZOLAM HCL [Concomitant]
  6. (SIVELESTAT SODIUM) [Concomitant]
  7. (SULBACTAM/AMPICIL) [Concomitant]
  8. AMLODIPINE [Concomitant]
  9. FUROSEMIDE [Concomitant]
  10. SPIRONOLACTONE [Concomitant]
  11. RANITIDINE [Concomitant]
  12. (TULOBUTEROL) [Concomitant]
  13. NICARDIPINE HYDROCHLORIDE [Concomitant]
  14. HUMULIN R [Concomitant]
  15. IMIDAPRIL [Concomitant]

REACTIONS (6)
  - HYPOXIA [None]
  - MALAISE [None]
  - NAUSEA [None]
  - PNEUMONIA ASPIRATION [None]
  - SALIVARY HYPERSECRETION [None]
  - VOMITING [None]
